FAERS Safety Report 6943601-9 (Version None)
Quarter: 2010Q3

REPORT INFORMATION
  Report Type: 
  Country: None (occurrence: None)
  Receive Date: 20100826
  Receipt Date: 20100818
  Transmission Date: 20110219
  Serious: Yes (Other)
  Sender: FDA-Public Use
  Company Number: US-AMGEN-KDC432172

PATIENT
  Age: 58 Year
  Sex: Male
  Weight: 77.7 kg

DRUGS (4)
  1. PANITUMUMAB [Suspect]
     Indication: OESOPHAGEAL CARCINOMA
     Route: 042
     Dates: start: 20100416
  2. TAXOTERE [Suspect]
     Route: 042
     Dates: start: 20100416
  3. CISPLATIN [Suspect]
     Route: 042
     Dates: start: 20100416
  4. RADIATION THERAPY [Suspect]
     Dates: start: 20100624

REACTIONS (1)
  - LYMPHOPENIA [None]
